FAERS Safety Report 23467766 (Version 1)
Quarter: 2024Q1

REPORT INFORMATION
  Report Type: Spontaneous
  Country: CH (occurrence: CH)
  Receive Date: 20240201
  Receipt Date: 20240201
  Transmission Date: 20240410
  Serious: Yes (Hospitalization, Other)
  Sender: FDA-Public Use
  Company Number: None

PATIENT
  Age: 31 Year
  Sex: Male

DRUGS (13)
  1. DAFALGAN [Suspect]
     Active Substance: ACETAMINOPHEN
     Dosage: 1 G N/A DOSE EVERY 6 HOUR
     Route: 065
  2. DAFALGAN [Suspect]
     Active Substance: ACETAMINOPHEN
     Indication: Radiculopathy
     Dosage: IN TOTAL
     Route: 065
     Dates: start: 20231218, end: 20231218
  3. DAFALGAN [Suspect]
     Active Substance: ACETAMINOPHEN
     Dosage: IN TOTAL
     Route: 065
     Dates: start: 20231219, end: 20231219
  4. FYCOMPA [Suspect]
     Active Substance: PERAMPANEL
     Dosage: 1 DF 1 FMOL/G N/A DOSE EVERY 1 DAY
     Route: 065
     Dates: end: 20231217
  5. FYCOMPA [Suspect]
     Active Substance: PERAMPANEL
     Indication: Radiculopathy
     Dosage: 20 DF INGREDIENT (PERAMPANEL): 4MG;
     Route: 065
     Dates: start: 20231218, end: 20231218
  6. IBUPROFEN [Suspect]
     Active Substance: IBUPROFEN
     Indication: Product used for unknown indication
     Dosage: 3 DF
     Route: 065
     Dates: start: 20231219, end: 20231219
  7. QUETIAPINE [Suspect]
     Active Substance: QUETIAPINE
     Dosage: IN TOTAL
     Route: 065
     Dates: start: 20231219, end: 20231219
  8. QUETIAPINE [Suspect]
     Active Substance: QUETIAPINE
     Dosage: 25 MG N/A DOSE EVERY 6 HOUR
     Route: 065
     Dates: end: 20231217
  9. QUETIAPINE [Suspect]
     Active Substance: QUETIAPINE
     Indication: Radiculopathy
     Dosage: IN TOTAL
     Route: 065
     Dates: start: 20231218, end: 20231218
  10. TRAMADOL [Suspect]
     Active Substance: TRAMADOL\TRAMADOL HYDROCHLORIDE
     Dosage: IN TOTAL
     Route: 065
     Dates: start: 20231219, end: 20231219
  11. TRAMADOL [Suspect]
     Active Substance: TRAMADOL\TRAMADOL HYDROCHLORIDE
     Indication: Radiculopathy
     Dosage: 50 MG N/A DOSE EVERY 12 HOUR
     Route: 065
     Dates: end: 20231218
  12. CLORAZEPATE DIPOTASSIUM [Suspect]
     Active Substance: CLORAZEPATE DIPOTASSIUM
     Indication: Radiculopathy
     Dosage: 10 MG N/A DOSE EVERY 6 HOUR
     Route: 065
     Dates: start: 20231219, end: 20231219
  13. CLORAZEPATE DIPOTASSIUM [Suspect]
     Active Substance: CLORAZEPATE DIPOTASSIUM
     Dosage: IN TOTAL
     Route: 065
     Dates: end: 20231218

REACTIONS (7)
  - Altered state of consciousness [Recovered/Resolved]
  - Intentional overdose [Recovered/Resolved]
  - Intentional overdose [Recovered/Resolved]
  - Dizziness [Recovered/Resolved]
  - Gait disturbance [Recovered/Resolved]
  - Head injury [Recovered/Resolved]
  - Fall [Recovered/Resolved]

NARRATIVE: CASE EVENT DATE: 20231218
